FAERS Safety Report 10039259 (Version 1)
Quarter: 2014Q1

REPORT INFORMATION
  Report Type: Spontaneous
  Country: FR (occurrence: FR)
  Receive Date: 20140326
  Receipt Date: 20140326
  Transmission Date: 20141002
  Serious: Yes (Hospitalization)
  Sender: FDA-Public Use
  Company Number: PHHY2014FR034678

PATIENT
  Age: 46 Year
  Sex: Female

DRUGS (9)
  1. TEGRETOL [Suspect]
     Dosage: 200 MG, UNK
     Route: 048
     Dates: start: 20140106, end: 20140204
  2. VALDOXAN [Suspect]
     Dosage: 25 MG, UNK
     Route: 048
     Dates: start: 20140103, end: 20140204
  3. TRANXENE [Suspect]
     Dosage: 20 MG, 5 TIMES A DAY
     Route: 048
     Dates: start: 20140126, end: 20140204
  4. THERALENE [Suspect]
     Dosage: UNK UKN, UNK
     Route: 048
     Dates: start: 20140130, end: 20140204
  5. IMOVANE [Concomitant]
     Dosage: UNK UKN, UNK
  6. INEXIUM//ESOMEPRAZOLE SODIUM [Concomitant]
     Dosage: UNK UKN, UNK
  7. DAFALGAN CODEINE [Concomitant]
     Dosage: UNK UKN, UNK
  8. LIPANTHYL [Concomitant]
     Dosage: UNK UKN, UNK
  9. TRAMADOL [Concomitant]
     Dosage: UNK UKN, UNK

REACTIONS (5)
  - Lip oedema [Recovered/Resolved]
  - Rash morbilliform [Recovered/Resolved]
  - Pyrexia [Recovered/Resolved]
  - Transaminases increased [Recovered/Resolved]
  - Eosinophilia [Recovered/Resolved]
